FAERS Safety Report 5897207-3 (Version None)
Quarter: 2008Q3

REPORT INFORMATION
  Report Type: 
  Country: None (occurrence: None)
  Receive Date: 20080923
  Receipt Date: 20080908
  Transmission Date: 20090109
  Serious: Yes (Death)
  Sender: FDA-Public Use
  Company Number: KADN20080337

PATIENT
  Sex: Male

DRUGS (2)
  1. MORPHINE SULFATE INJ [Suspect]
     Dosage: ORAL
     Route: 048
     Dates: end: 20050101
  2. DIAZEPAM [Suspect]
     Dosage: INGESTION
     Dates: end: 20050101

REACTIONS (3)
  - ARTERIOSCLEROSIS [None]
  - DRUG TOXICITY [None]
  - HYPERTENSIVE HEART DISEASE [None]
